FAERS Safety Report 16366452 (Version 1)
Quarter: 2019Q2

REPORT INFORMATION
  Report Type: Spontaneous
  Country: HR (occurrence: HR)
  Receive Date: 20190529
  Receipt Date: 20190529
  Transmission Date: 20190711
  Serious: Yes (Other)
  Sender: FDA-Public Use
  Company Number: HR-TEVA-2019-HR-1055317

PATIENT
  Age: 21 Month
  Sex: Male
  Weight: 13 kg

DRUGS (1)
  1. SALBUTAMOL PLIVA [Suspect]
     Active Substance: ALBUTEROL
     Route: 055
     Dates: start: 20190112, end: 20190112

REACTIONS (5)
  - Initial insomnia [Unknown]
  - Accidental overdose [Unknown]
  - Tachycardia [Unknown]
  - Agitation [Unknown]
  - Respiratory arrest [Unknown]

NARRATIVE: CASE EVENT DATE: 20190112
